FAERS Safety Report 4907874-6 (Version None)
Quarter: 2006Q1

REPORT INFORMATION
  Report Type: 
  Country: None (occurrence: None)
  Receive Date: 20060210
  Receipt Date: 20060127
  Transmission Date: 20060701
  Serious: Yes (Hospitalization)
  Sender: FDA-Public Use
  Company Number: SG-RB-2761-2006

PATIENT
  Age: 23 Year
  Sex: Male

DRUGS (2)
  1. BUPRENORPHINE HCL [Suspect]
     Route: 042
  2. BUPRENORPHINE HCL [Suspect]
     Route: 042

REACTIONS (8)
  - ARM AMPUTATION [None]
  - DRY GANGRENE [None]
  - FINGER AMPUTATION [None]
  - GANGRENE [None]
  - ISCHAEMIA [None]
  - OEDEMA PERIPHERAL [None]
  - SEPSIS [None]
  - SUBCLAVIAN VEIN THROMBOSIS [None]
